FAERS Safety Report 21481071 (Version 2)
Quarter: 2023Q1

REPORT INFORMATION
  Report Type: Spontaneous
  Country: US (occurrence: US)
  Receive Date: 20221019
  Receipt Date: 20230208
  Transmission Date: 20230417
  Serious: Yes (Other)
  Sender: FDA-Public Use
  Company Number: US-Vifor (International) Inc.-VIT-2022-07018

PATIENT
  Age: 84 Year
  Sex: Male

DRUGS (13)
  1. VELTASSA [Suspect]
     Active Substance: PATIROMER
     Indication: Hyperkalaemia
     Dosage: DISSOLVE CONTENTS OF 1 PACKET INTO 1/3 CUP OF WATER AND DRINK FULL AMOUNT ONCE DAILY AS DIRECTED.
     Route: 048
     Dates: start: 20190906
  2. VELTASSA [Suspect]
     Active Substance: PATIROMER
     Dosage: DISSOLVE CONTENTS OF 1 PACKET INTO 1/3 CUP OF WATER AND DRINK FULL AMOUNT ONCE DAILY AS DIRECTED.
     Route: 048
  3. ALLOPURINOL [Concomitant]
     Active Substance: ALLOPURINOL
  4. ASPIRIN [Concomitant]
     Active Substance: ASPIRIN
  5. ATORVASTATIN [Concomitant]
     Active Substance: ATORVASTATIN
  6. CARVEDILOL [Concomitant]
     Active Substance: CARVEDILOL
  7. ENTRESTO [Concomitant]
     Active Substance: SACUBITRIL\VALSARTAN
     Dosage: STRENGTH 97-103 MG
  8. GLIMEPIRIDE [Concomitant]
     Active Substance: GLIMEPIRIDE
  9. MAGNESIUM OXIDE [Concomitant]
     Active Substance: MAGNESIUM OXIDE
  10. SODIUM BICARBONATE [Concomitant]
     Active Substance: SODIUM BICARBONATE
  11. SPIRONOLACTONE [Concomitant]
     Active Substance: SPIRONOLACTONE
  12. VITAMIN D3 [Concomitant]
     Active Substance: CHOLECALCIFEROL
     Dosage: STRENGTH: 5000 UNIT
  13. HUMALOG KWIK [Concomitant]
     Dosage: STRENGTH: 100/ML

REACTIONS (3)
  - Illness [Unknown]
  - Product dose omission issue [Unknown]
  - Pneumonia [Recovered/Resolved]

NARRATIVE: CASE EVENT DATE: 20220913
